FAERS Safety Report 18777642 (Version 1)
Quarter: 2021Q1

REPORT INFORMATION
  Report Type: Spontaneous
  Country: US (occurrence: US)
  Receive Date: 20210122
  Receipt Date: 20210122
  Transmission Date: 20210419
  Serious: Yes (Hospitalization)
  Sender: FDA-Public Use
  Company Number: US-TEVA-2021-US-1869872

PATIENT
  Age: 38 Year
  Sex: Female

DRUGS (8)
  1. CALCIUM ACETATE. [Suspect]
     Active Substance: CALCIUM ACETATE
     Indication: SUPPLEMENTATION THERAPY
     Dosage: 6003 MILLIGRAM DAILY; THREE TIMES A DAY
     Route: 065
  2. CALCIUM CARBONATE. [Suspect]
     Active Substance: CALCIUM CARBONATE
     Indication: SUPPLEMENTATION THERAPY
     Dosage: 3750 MILLIGRAM DAILY; THREE TIMES A DAY
     Route: 065
  3. CALCIUM CARBONATE. [Suspect]
     Active Substance: CALCIUM CARBONATE
     Indication: HYPOCALCAEMIA
  4. CALCIUM ACETATE. [Suspect]
     Active Substance: CALCIUM ACETATE
     Indication: HYPOCALCAEMIA
  5. CINACALCET. [Suspect]
     Active Substance: CINACALCET
     Indication: HYPERCALCAEMIA
     Dosage: UNKNOWN
     Route: 065
  6. NATPARA (PARATHYROID HORMONE) [Suspect]
     Active Substance: PARATHYROID HORMONE
     Indication: HYPOPARATHYROIDISM
     Route: 065
  7. CALCITRIOL. [Suspect]
     Active Substance: CALCITRIOL
     Indication: HYPOCALCAEMIA
     Dosage: 1.5 MICROGRAM DAILY; THREE TIMES A DAY
     Route: 065
  8. NATPARA (PARATHYROID HORMONE) [Suspect]
     Active Substance: PARATHYROID HORMONE
     Route: 065

REACTIONS (6)
  - Hypercalcaemia [Recovered/Resolved]
  - Toxicity to various agents [Unknown]
  - Calciphylaxis [Unknown]
  - Drug ineffective [Unknown]
  - Overdose [Unknown]
  - Musculoskeletal disorder [Unknown]
